FAERS Safety Report 6454727-0 (Version None)
Quarter: 2009Q4

REPORT INFORMATION
  Report Type: 
  Country: None (occurrence: None)
  Receive Date: 20091118
  Receipt Date: 20091105
  Transmission Date: 20100525
  Serious: Yes (Other)
  Sender: FDA-Public Use
  Company Number: CIR-FR-336-09

PATIENT
  Age: 90 Year
  Sex: Male

DRUGS (1)
  1. CIRCADIN (MELATONIN) (MELATONIN) [Suspect]
     Dosage: 2 MG, ORAL
     Route: 048

REACTIONS (1)
  - CARDIAC DISORDER [None]
